FAERS Safety Report 19454424 (Version 1)
Quarter: 2021Q2

REPORT INFORMATION
  Report Type: Spontaneous
  Country: GB (occurrence: GB)
  Receive Date: 20210623
  Receipt Date: 20210623
  Transmission Date: 20210717
  Serious: Yes (Life-Threatening)
  Sender: FDA-Public Use
  Company Number: GB-TEVA-2021-GB-1924060

PATIENT
  Age: 46 Year
  Sex: Female

DRUGS (1)
  1. OLANZAPINE. [Suspect]
     Active Substance: OLANZAPINE
     Indication: MENTAL DISORDER
     Dosage: 5 MILLIGRAM DAILY;
     Route: 048
     Dates: start: 20210603

REACTIONS (5)
  - Nausea [Unknown]
  - Pyrexia [Unknown]
  - Neuroleptic malignant syndrome [Recovering/Resolving]
  - Syncope [Unknown]
  - Tachycardia [Unknown]

NARRATIVE: CASE EVENT DATE: 20210608
